FAERS Safety Report 15889407 (Version 1)
Quarter: 2019Q1

REPORT INFORMATION
  Report Type: Spontaneous
  Country: US (occurrence: US)
  Receive Date: 20190130
  Receipt Date: 20190130
  Transmission Date: 20190417
  Serious: Yes (Life-Threatening, Hospitalization, Other)
  Sender: FDA-Public Use
  Company Number: None

PATIENT
  Age: 33 Year
  Sex: Male
  Weight: 120.6 kg

DRUGS (1)
  1. HYDROXYZINE PAMOATE 25MG CAPS GENERIC FOR VISITARIL [Suspect]
     Active Substance: HYDROXYZINE PAMOATE
     Indication: PRURITUS
     Dosage: ?          QUANTITY:30 CAPSULE(S);?
     Route: 048
     Dates: start: 20190110, end: 20190116

REACTIONS (10)
  - Dry mouth [None]
  - Abnormal behaviour [None]
  - Dysphemia [None]
  - Paranoia [None]
  - Anxiety [None]
  - Weight decreased [None]
  - Crying [None]
  - Hallucination, auditory [None]
  - Hallucination, visual [None]
  - Tremor [None]

NARRATIVE: CASE EVENT DATE: 20190110
